FAERS Safety Report 8261601-6 (Version None)
Quarter: 2012Q2

REPORT INFORMATION
  Report Type: 
  Country: None (occurrence: None)
  Receive Date: 20120405
  Receipt Date: 20120328
  Transmission Date: 20120825
  Serious: Yes (Hospitalization)
  Sender: FDA-Public Use
  Company Number: IT-ASTRAZENECA-2012SE20806

PATIENT
  Age: 30612 Day
  Sex: Female

DRUGS (7)
  1. PROPAFENONE HCL [Suspect]
     Indication: ATRIAL FIBRILLATION
     Route: 040
     Dates: start: 20120203
  2. LORAZEPAM [Concomitant]
  3. LASIX [Concomitant]
  4. TENORMIN [Suspect]
     Indication: ATRIAL FIBRILLATION
     Route: 040
     Dates: start: 20120203
  5. LEVOTHYROXINE SODIUM [Concomitant]
  6. RAMIPRIL [Concomitant]
  7. BISOPROLOL FUMARATE [Concomitant]

REACTIONS (2)
  - VENTRICULAR ASYSTOLE [None]
  - NODAL ARRHYTHMIA [None]
